FAERS Safety Report 8351983-9 (Version None)
Quarter: 2012Q2

REPORT INFORMATION
  Report Type: 
  Country: None (occurrence: None)
  Receive Date: 20120511
  Receipt Date: 20120504
  Transmission Date: 20120825
  Serious: Yes (Hospitalization)
  Sender: FDA-Public Use
  Company Number: US-BAYER-2011-090653

PATIENT
  Age: 44 Year
  Sex: Female
  Weight: 131.52 kg

DRUGS (14)
  1. CEFADROXIL [Concomitant]
     Dosage: UNK
     Dates: start: 20090708
  2. MELOXICAM [Concomitant]
     Dosage: UNK
     Dates: start: 20090604
  3. FLUCONAZOLE [Concomitant]
     Dosage: UNK
     Dates: start: 20090708
  4. YAZ [Suspect]
     Dosage: UNK
     Dates: start: 20050101, end: 20090101
  5. LEVAQUIN [Concomitant]
     Dosage: UNK
     Dates: start: 20090718
  6. ACIDOPHILUS [Concomitant]
  7. YASMIN [Suspect]
     Dosage: UNK
     Dates: start: 20050101, end: 20090101
  8. PENICILLIN [Concomitant]
     Indication: CELLULITIS
     Dosage: UNK
     Dates: start: 20090720
  9. ATENOLOL [Concomitant]
     Indication: HYPERTENSION
     Dosage: UNK
     Dates: start: 20040101
  10. AMLODIPINE BESYLATE AND BENAZEPRIL HCL [Concomitant]
     Dosage: UNK
     Dates: start: 20090524
  11. VANCOMYCIN [Concomitant]
     Indication: CELLULITIS
  12. CLINDAMYCIN [Concomitant]
     Dosage: UNK
     Dates: start: 20090708
  13. LASIX [Concomitant]
     Indication: CELLULITIS
     Dosage: UNK
     Dates: start: 20090810
  14. PREDNISONE [Concomitant]
     Dosage: UNK
     Dates: start: 20090720

REACTIONS (6)
  - DEEP VEIN THROMBOSIS [None]
  - ANXIETY [None]
  - PULMONARY EMBOLISM [None]
  - INJURY [None]
  - EMOTIONAL DISTRESS [None]
  - PAIN [None]
